FAERS Safety Report 15940021 (Version 1)
Quarter: 2019Q1

REPORT INFORMATION
  Report Type: Spontaneous
  Country: JP (occurrence: JP)
  Receive Date: 20190208
  Receipt Date: 20190208
  Transmission Date: 20190417
  Serious: Yes (Other)
  Sender: FDA-Public Use
  Company Number: JP-PFIZER INC-2019049023

PATIENT
  Age: 9 Decade
  Sex: Male

DRUGS (1)
  1. BOSULIF [Suspect]
     Active Substance: BOSUTINIB MONOHYDRATE
     Indication: CHRONIC MYELOID LEUKAEMIA
     Dosage: 200 MG, DAILY

REACTIONS (5)
  - Neoplasm progression [Unknown]
  - Aspartate aminotransferase increased [Unknown]
  - Second primary malignancy [Unknown]
  - Carcinoid tumour [Unknown]
  - Alanine aminotransferase increased [Unknown]
